FAERS Safety Report 7259576-1 (Version None)
Quarter: 2011Q1

REPORT INFORMATION
  Report Type: 
  Country: None (occurrence: None)
  Receive Date: 20110119
  Receipt Date: 20110106
  Transmission Date: 20110831
  Serious: Yes (Death, Hospitalization)
  Sender: FDA-Public Use
  Company Number: CLOF-1000086

PATIENT
  Age: 76 Year
  Sex: Male
  Weight: 88.4 kg

DRUGS (32)
  1. LISINOPRIL (HYDROCHLOROTHIAZIDE, LISINOPRIL DIHYDRATE) [Concomitant]
  2. POTASSIUM CHLORIDE [Concomitant]
  3. AMLODIPINE [Concomitant]
  4. METOPROLOL TARTRATE [Concomitant]
  5. ALBUMIN (HUMAN) [Concomitant]
  6. FILGRASTIM (FILGRASTIM) [Concomitant]
  7. PRAMOXIN/HYDROCORTISONE [Concomitant]
  8. DEXTROSE [Concomitant]
  9. LORAZEPAM [Concomitant]
  10. AMPICILINA SULBACTAM (AMPICILLIN SODIUM, SULBACTAM SODIUM) [Concomitant]
  11. DEXTROSE 5% [Concomitant]
  12. HYDRALAZINE HCL (HYDRALAZINE HYDROCHLORIDE) [Concomitant]
  13. SENNA [Concomitant]
  14. METFORMIN HCL [Concomitant]
  15. GLYBURIDE [Concomitant]
  16. DIFLUCAN [Concomitant]
  17. DIPHENHYDRAMINE HCL [Concomitant]
  18. CLOFARABINE (CLOFARABINE) TABLET [Suspect]
     Indication: MYELODYSPLASTIC SYNDROME
     Dosage: 55 MG, QDX5, ORAL
     Route: 048
     Dates: start: 20080128, end: 20080201
  19. LEVAQUIN [Concomitant]
  20. REPAGLINIDE [Concomitant]
  21. MAGNESIUM SULFATE [Concomitant]
  22. ONDANSETRON [Concomitant]
  23. FUROSEMIDE [Concomitant]
  24. LABETALOL HCL (LABETALOL HYDROCHLORIDE) [Concomitant]
  25. LANTUS [Concomitant]
  26. DOCUSATE SODIUM (DOCUSATE SODIUM) [Concomitant]
  27. NOVOLOG [Concomitant]
  28. SPIRONOLACTONE [Concomitant]
  29. FLUCONAZOLE [Concomitant]
  30. ESOMEPRAZOLE (ESOMEPRAZOLE) [Concomitant]
  31. TAMSULOSIN HCL [Concomitant]
  32. MORPHINE [Concomitant]

REACTIONS (18)
  - PETECHIAE [None]
  - GAZE PALSY [None]
  - PANCYTOPENIA [None]
  - MIOSIS [None]
  - NEPHROLITHIASIS [None]
  - RENAL FAILURE [None]
  - DIARRHOEA [None]
  - DEPRESSED LEVEL OF CONSCIOUSNESS [None]
  - FATIGUE [None]
  - NAUSEA [None]
  - FEBRILE NEUTROPENIA [None]
  - FLUID OVERLOAD [None]
  - VOMITING [None]
  - RASH ERYTHEMATOUS [None]
  - LYMPHADENOPATHY [None]
  - HYPOGLYCAEMIA [None]
  - CYSTITIS [None]
  - ASTHENIA [None]
